FAERS Safety Report 23423175 (Version 1)
Quarter: 2024Q1

REPORT INFORMATION
  Report Type: Spontaneous
  Country: CN (occurrence: None)
  Receive Date: 20240119
  Receipt Date: 20240119
  Transmission Date: 20240409
  Serious: Yes (Other)
  Sender: FDA-Public Use
  Company Number: 2024A010129

PATIENT
  Age: 17777 Day
  Sex: Male

DRUGS (2)
  1. DAPAGLIFLOZIN [Suspect]
     Active Substance: DAPAGLIFLOZIN
     Indication: Blood glucose abnormal
     Dosage: 1.00 TABLET, ONCE EVERY ONE DAY
     Route: 048
     Dates: start: 20231201, end: 20231219
  2. ATORVASTATIN CALCIUM [Suspect]
     Active Substance: ATORVASTATIN CALCIUM
     Indication: Lipids abnormal
     Dosage: 1.00 TABLET, ONCE EVERY ONE DAY
     Route: 048
     Dates: start: 20231201, end: 20231219

REACTIONS (2)
  - Hepatic function abnormal [Unknown]
  - Hepatic steatosis [Unknown]

NARRATIVE: CASE EVENT DATE: 20231219
